FAERS Safety Report 6780142-6 (Version None)
Quarter: 2010Q2

REPORT INFORMATION
  Report Type: 
  Country: None (occurrence: None)
  Receive Date: 20100618
  Receipt Date: 20100609
  Transmission Date: 20101027
  Serious: Yes (Other)
  Sender: FDA-Public Use
  Company Number: US-TEVA-224617USA

PATIENT
  Sex: Female

DRUGS (1)
  1. COPAXONE [Suspect]
     Indication: MULTIPLE SCLEROSIS
     Route: 058
     Dates: start: 20090601

REACTIONS (7)
  - DEFAECATION URGENCY [None]
  - DYSPNOEA [None]
  - GRAND MAL CONVULSION [None]
  - HEAD BANGING [None]
  - MUSCULOSKELETAL DISORDER [None]
  - PRESYNCOPE [None]
  - VOMITING [None]
